FAERS Safety Report 4487113-3 (Version None)
Quarter: 2004Q4

REPORT INFORMATION
  Report Type: 
  Country: None (occurrence: None)
  Receive Date: 20041027
  Receipt Date: 20041001
  Transmission Date: 20050328
  Serious: Yes (Other)
  Sender: FDA-Public Use
  Company Number: DE-GLAXOSMITHKLINE-D0044853A

PATIENT
  Age: 64 Year
  Sex: Male
  Weight: 65 kg

DRUGS (10)
  1. ZOVIRAX [Suspect]
     Indication: HERPES ZOSTER
     Dosage: 4TAB PER DAY
     Route: 048
     Dates: start: 20040720, end: 20040725
  2. VALTREX [Concomitant]
     Route: 048
  3. GANCICLOVIR [Concomitant]
     Route: 065
  4. SANDIMMUNE [Concomitant]
     Indication: LIVER TRANSPLANT
     Dosage: 50MG VARIABLE DOSE
     Route: 048
  5. SALOFALK [Concomitant]
     Route: 065
  6. PANTOPRAZOLE SODIUM [Concomitant]
     Dosage: 40MG UNKNOWN
     Route: 065
  7. CALCIUM D3 [Concomitant]
     Route: 065
  8. INSUMAN [Concomitant]
     Route: 065
  9. FERROUS SULFATE TAB [Concomitant]
     Route: 065
  10. OXAZEPAM [Concomitant]
     Dosage: 10MG UNKNOWN
     Route: 065

REACTIONS (4)
  - ANGIOPATHY [None]
  - BLOOD GLUCOSE INCREASED [None]
  - BLOOD INSULIN DECREASED [None]
  - CARBOHYDRATE METABOLISM DISORDER [None]
